FAERS Safety Report 15702178 (Version 1)
Quarter: 2018Q4

REPORT INFORMATION
  Report Type: Spontaneous
  Country: US (occurrence: US)
  Receive Date: 20181129
  Receipt Date: 20181129
  Transmission Date: 20190205
  Serious: No
  Sender: FDA-Public Use
  Company Number: None

PATIENT
  Age: 58 Year
  Sex: Female

DRUGS (1)
  1. ENBREL [Suspect]
     Active Substance: ETANERCEPT
     Indication: PSORIASIS
     Dosage: ?          OTHER ROUTE:INJECTION?
     Dates: start: 20180828

REACTIONS (3)
  - Nasal inflammation [None]
  - Paranasal sinus discomfort [None]
  - Sinus congestion [None]

NARRATIVE: CASE EVENT DATE: 201810
